FAERS Safety Report 23871992 (Version 1)
Quarter: 2024Q2

REPORT INFORMATION
  Report Type: Spontaneous
  Country: US (occurrence: US)
  Receive Date: 20240520
  Receipt Date: 20240520
  Transmission Date: 20240716
  Serious: Yes (Other)
  Sender: FDA-Public Use
  Company Number: US-BRISTOL-MYERS SQUIBB COMPANY-2024-076446

PATIENT
  Age: 79 Year
  Sex: Female

DRUGS (7)
  1. REVLIMID [Suspect]
     Active Substance: LENALIDOMIDE
     Indication: Plasma cell myeloma
     Route: 048
     Dates: start: 20240215
  2. RITUXAN [Concomitant]
     Active Substance: RITUXIMAB
     Indication: Product used for unknown indication
     Dates: start: 20240215
  3. ASPIRIN [Concomitant]
     Active Substance: ASPIRIN
     Indication: Product used for unknown indication
     Dates: start: 20240215
  4. LANSOPRAZOLE [Concomitant]
     Active Substance: LANSOPRAZOLE
     Indication: Product used for unknown indication
     Dates: start: 20240215
  5. LEXAPRO [Concomitant]
     Active Substance: ESCITALOPRAM OXALATE
     Indication: Product used for unknown indication
     Dates: start: 20240215
  6. LISINOPRIL [Concomitant]
     Active Substance: LISINOPRIL
     Indication: Product used for unknown indication
     Dates: start: 20240215
  7. SIMVASTATIN [Concomitant]
     Active Substance: SIMVASTATIN
     Indication: Product used for unknown indication
     Dates: start: 20240215

REACTIONS (1)
  - Neutropenia [Not Recovered/Not Resolved]

NARRATIVE: CASE EVENT DATE: 20240516
